FAERS Safety Report 8447081-6 (Version None)
Quarter: 2012Q2

REPORT INFORMATION
  Report Type: 
  Country: None (occurrence: None)
  Receive Date: 20120619
  Receipt Date: 20120608
  Transmission Date: 20120825
  Serious: Yes (Other)
  Sender: FDA-Public Use
  Company Number: CH-ASTRAZENECA-2012SE38687

PATIENT

DRUGS (5)
  1. MORPHINE [Concomitant]
     Indication: ANALGESIC THERAPY
     Dosage: 0.05-0.1 MG/KG
     Route: 042
  2. ACETAMINOPHEN [Concomitant]
     Indication: ANALGESIC THERAPY
     Dosage: 20 MG/KG
     Route: 054
  3. CEFOTAXIME [Concomitant]
  4. ANAESTHETIC [Concomitant]
     Indication: GENERAL ANAESTHESIA
  5. LIDOCAINE [Suspect]
     Dosage: 6-15 ML
     Route: 023

REACTIONS (1)
  - METHAEMOGLOBINAEMIA [None]
